FAERS Safety Report 4595916-X (Version None)
Quarter: 2005Q1

REPORT INFORMATION
  Report Type: 
  Country: None (occurrence: None)
  Receive Date: 20050224
  Receipt Date: 20050211
  Transmission Date: 20050727
  Serious: Yes (Hospitalization, Other)
  Sender: FDA-Public Use
  Company Number: DEU-2005-0001242

PATIENT
  Age: 64 Year
  Sex: Female

DRUGS (11)
  1. OXYCODONE HCL [Suspect]
     Indication: BONE PAIN
     Dosage: SEE IMAGE
     Route: 048
     Dates: start: 19960101
  2. ANTIBIOTICS () [Suspect]
     Indication: INFECTION
     Dosage: ORAL
     Route: 048
  3. THEOPHYLLINE [Concomitant]
  4. ANTI-ASTHMATICS [Concomitant]
  5. SEREVENT [Concomitant]
  6. KLIOGEST (ESTRADIOL, NORETHISTERONE ACETATE) [Concomitant]
  7. KATADOLON (FLUPIRTINE MALEATE) [Concomitant]
  8. PANTOPRAZOLE SODIUM [Concomitant]
  9. OSSOFORTIN FORTE (CALCIUM CARBONATE, COLECALCIFEROL) [Concomitant]
  10. COVERSUM COR (PERINDOPRIL ERBUMINE) [Concomitant]
  11. ISOPTIN [Concomitant]

REACTIONS (9)
  - CHRONIC OBSTRUCTIVE AIRWAYS DISEASE EXACERBATED [None]
  - CLOSTRIDIUM COLITIS [None]
  - CONFUSIONAL STATE [None]
  - CYANOSIS [None]
  - DRUG INTERACTION [None]
  - HYPERTHYROIDISM [None]
  - RENAL FAILURE ACUTE [None]
  - SINUS TACHYCARDIA [None]
  - VAGINAL HAEMORRHAGE [None]
